FAERS Safety Report 6494650-9 (Version None)
Quarter: 2009Q4

REPORT INFORMATION
  Report Type: 
  Country: None (occurrence: None)
  Receive Date: 20091214
  Receipt Date: 20090328
  Transmission Date: 20100525
  Serious: No
  Sender: FDA-Public Use
  Company Number: US-BRISTOL-MYERS SQUIBB COMPANY-14541106

PATIENT
  Age: 50 Year
  Sex: Female

DRUGS (3)
  1. ABILIFY [Suspect]
     Indication: SCHIZOAFFECTIVE DISORDER
     Dosage: TAKEN IN THE MORNING
     Dates: start: 20090305
  2. ABILIFY [Suspect]
     Indication: BIPOLAR I DISORDER
     Dosage: TAKEN IN THE MORNING
     Dates: start: 20090305
  3. SEROQUEL [Concomitant]

REACTIONS (1)
  - THERAPEUTIC RESPONSE DECREASED [None]
